FAERS Safety Report 17518877 (Version 1)
Quarter: 2020Q1

REPORT INFORMATION
  Report Type: Spontaneous
  Country: FR (occurrence: FR)
  Receive Date: 20200310
  Receipt Date: 20200310
  Transmission Date: 20200409
  Serious: Yes (Hospitalization)
  Sender: FDA-Public Use
  Company Number: FR-TEVA-2020-FR-1196072

PATIENT
  Age: 60 Year
  Sex: Female
  Weight: 59 kg

DRUGS (15)
  1. TRAMADOL BASE [Suspect]
     Active Substance: TRAMADOL
     Route: 048
     Dates: start: 20170308, end: 20170308
  2. CEFAZOLINE MYLAN [Suspect]
     Active Substance: CEFAZOLIN SODIUM
     Indication: ANTIBIOTIC PROPHYLAXIS
     Route: 042
     Dates: start: 20170308, end: 20170308
  3. ISOFUNDINE [Suspect]
     Active Substance: CALCIUM CHLORIDE\MAGNESIUM CHLORIDE\MALIC ACID\POTASSIUM CHLORIDE\SODIUM ACETATE\SODIUM CHLORIDE
     Route: 041
     Dates: start: 20170308, end: 20170308
  4. ROCURONIUM B BRAUN [Suspect]
     Active Substance: ROCURONIUM BROMIDE
     Indication: GENERAL ANAESTHESIA
     Route: 042
     Dates: start: 20170308, end: 20170308
  5. SUFENTANIL MYLAN [Suspect]
     Active Substance: SUFENTANIL
     Indication: GENERAL ANAESTHESIA
     Route: 042
     Dates: start: 20170308, end: 20170308
  6. PARACETAMOL [Suspect]
     Active Substance: ACETAMINOPHEN
     Indication: ANALGESIC THERAPY
     Route: 048
     Dates: start: 20170308, end: 20170308
  7. CIMETIDINE ARROW [Suspect]
     Active Substance: CIMETIDINE
     Route: 048
     Dates: start: 20170308, end: 20170308
  8. DEXAMETHASONE MYLAN [Suspect]
     Active Substance: DEXAMETHASONE
     Route: 042
     Dates: start: 20170308, end: 20170308
  9. BETADINE [Suspect]
     Active Substance: POVIDONE-IODINE
     Route: 003
     Dates: start: 20170308, end: 20170308
  10. NEFOPAM MEDISOL [Suspect]
     Active Substance: NEFOPAM HYDROCHLORIDE
     Indication: ANALGESIC THERAPY
     Route: 042
     Dates: start: 20170308, end: 20170308
  11. CHLORHEXIDINE (GLUCONATE DE) [Suspect]
     Active Substance: CHLORHEXIDINE GLUCONATE
     Route: 003
     Dates: start: 20170308, end: 20170308
  12. ALPRAZOLAM MYLAN [Suspect]
     Active Substance: ALPRAZOLAM
     Indication: PREMEDICATION
     Route: 048
     Dates: start: 20170308, end: 20170308
  13. ROPIVACAINE (CHLORHYDRATE DE) MONOHYDRATE [Suspect]
     Active Substance: ROPIVACAINE HYDROCHLORIDE
     Dates: start: 20170308, end: 20170308
  14. KETAMINE RENAUDIN [Suspect]
     Active Substance: KETAMINE
     Indication: PERIOPERATIVE ANALGESIA
     Route: 042
     Dates: start: 20170308, end: 20170308
  15. PROPOFOL LIPURO [Suspect]
     Active Substance: PROPOFOL
     Indication: GENERAL ANAESTHESIA
     Route: 042
     Dates: start: 20170308, end: 20170308

REACTIONS (1)
  - Type I hypersensitivity [Recovered/Resolved]

NARRATIVE: CASE EVENT DATE: 20170308
